FAERS Safety Report 12615278 (Version 4)
Quarter: 2016Q3

REPORT INFORMATION
  Report Type: Spontaneous
  Country: FR (occurrence: FR)
  Receive Date: 20160802
  Receipt Date: 20160919
  Transmission Date: 20161109
  Serious: Yes (Life-Threatening, Disabling, Other)
  Sender: FDA-Public Use
  Company Number: FR-PFIZER INC-2016363811

PATIENT
  Age: 10 Year
  Sex: Male
  Weight: 32 kg

DRUGS (12)
  1. VANCOMYCINE [Suspect]
     Active Substance: VANCOMYCIN
     Dosage: UNK
     Dates: start: 20160707, end: 20160725
  2. DOLIPRANE [Suspect]
     Active Substance: ACETAMINOPHEN
     Dosage: UNK
     Route: 048
     Dates: start: 20160624, end: 20160625
  3. FORTUM /00559701/ [Suspect]
     Active Substance: CEFTAZIDIME
     Dosage: UNK
     Dates: start: 20160717, end: 20160718
  4. REMICADE [Suspect]
     Active Substance: INFLIXIMAB
     Dosage: UNK
     Route: 041
     Dates: start: 20160627
  5. AUGMENTIN [Suspect]
     Active Substance: AMOXICILLIN\CLAVULANATE POTASSIUM
     Dosage: UNK
     Route: 041
     Dates: start: 20160626, end: 20160628
  6. CIFLOX /00697202/ [Suspect]
     Active Substance: CIPROFLOXACIN HYDROCHLORIDE
     Dosage: UNK
     Route: 041
     Dates: start: 20160627, end: 20160703
  7. FORTUM /00559701/ [Suspect]
     Active Substance: CEFTAZIDIME
     Dosage: UNK
     Route: 041
     Dates: start: 20160710, end: 20160715
  8. PERFALGAN [Suspect]
     Active Substance: ACETAMINOPHEN
     Dosage: UNK
     Route: 041
     Dates: start: 20160626, end: 20160630
  9. ADVIL [Concomitant]
     Active Substance: IBUPROFEN
     Dosage: UNK
  10. TAZOCILLINE [Suspect]
     Active Substance: PIPERACILLIN SODIUM\TAZOBACTAM SODIUM
     Dosage: UNK
     Route: 041
     Dates: start: 20160629, end: 20160703
  11. FORTUM /00559701/ [Suspect]
     Active Substance: CEFTAZIDIME
     Dosage: UNK
  12. ZECLAR [Suspect]
     Active Substance: CLARITHROMYCIN
     Dosage: UNK
     Dates: start: 20160701, end: 20160711

REACTIONS (6)
  - Hepatitis [Recovered/Resolved with Sequelae]
  - Hepatocellular injury [Recovered/Resolved with Sequelae]
  - Hyperbilirubinaemia [Recovered/Resolved with Sequelae]
  - Cholestasis [Recovered/Resolved with Sequelae]
  - Prothrombin time shortened [Recovered/Resolved]
  - Eosinophilia [Recovered/Resolved]

NARRATIVE: CASE EVENT DATE: 20160626
